FAERS Safety Report 24848826 (Version 1)
Quarter: 2025Q1

REPORT INFORMATION
  Report Type: Report from Study
  Country: CO (occurrence: CO)
  Receive Date: 20250116
  Receipt Date: 20250116
  Transmission Date: 20250408
  Serious: Yes (Other)
  Sender: UCB
  Company Number: CO-UCBSA-2025001831

PATIENT
  Age: 20 Year
  Sex: Female

DRUGS (4)
  1. LACOSAMIDE [Suspect]
     Active Substance: LACOSAMIDE
     Indication: Epilepsy
     Dosage: 200 MILLIGRAM, 3X/DAY (TID)
     Route: 048
     Dates: start: 20231226, end: 20240920
  2. LACOSAMIDE [Suspect]
     Active Substance: LACOSAMIDE
     Dosage: 300 MILLIGRAM, 2X/DAY (BID)
     Route: 048
     Dates: start: 20240921
  3. LAMOTRIGINE [Concomitant]
     Active Substance: LAMOTRIGINE
     Indication: Product used for unknown indication
  4. CLOBAZAM [Concomitant]
     Active Substance: CLOBAZAM
     Indication: Product used for unknown indication

REACTIONS (3)
  - Seizure [Unknown]
  - Neuroprosthesis implantation [Recovered/Resolved]
  - Off label use [Unknown]

NARRATIVE: CASE EVENT DATE: 20231226
